FAERS Safety Report 6231645-4 (Version None)
Quarter: 2009Q2

REPORT INFORMATION
  Report Type: 
  Country: None (occurrence: None)
  Receive Date: 20090616
  Receipt Date: 20090605
  Transmission Date: 20091009
  Serious: Yes (Hospitalization)
  Sender: FDA-Public Use
  Company Number: DE-ELI_LILLY_AND_COMPANY-DE200905001675

PATIENT
  Sex: Male
  Weight: 132 kg

DRUGS (7)
  1. EXENATIDE [Suspect]
     Dosage: UNK, UNK
     Route: 058
  2. BENALAPRIL [Concomitant]
     Dosage: 10 MG, 2/D
  3. FUROSEMID [Concomitant]
     Dosage: 40 MG, 2/D
  4. ASPIRIN [Concomitant]
     Dosage: 100 MG, DAILY (1/D)
  5. SIMVABETA [Concomitant]
     Dosage: 40 MG, DAILY (1/D)
  6. BISOPROLOL [Concomitant]
     Dosage: 5 MG, 2/D
  7. ESIDRIX [Concomitant]
     Dosage: UNK, DAILY (1/D)

REACTIONS (1)
  - CEREBROVASCULAR ACCIDENT [None]
